FAERS Safety Report 5632432-8 (Version None)
Quarter: 2008Q1

REPORT INFORMATION
  Report Type: 
  Country: None (occurrence: None)
  Receive Date: 20080131
  Receipt Date: 20070816
  Transmission Date: 20080703
  Serious: No
  Sender: FDA-Public Use
  Company Number: 163-21880-07100334

PATIENT
  Age: 56 Year
  Sex: Male

DRUGS (3)
  1. REVLIMID [Suspect]
     Indication: MULTIPLE MYELOMA
     Dosage: 15 MG, DAILY X 21 DAYS WITH 7 DAYS OFF, ORAL ; 15 - 25 MG, DAILY, ORAL
     Route: 048
     Dates: start: 20070329
  2. REVLIMID [Suspect]
     Indication: MULTIPLE MYELOMA
     Dosage: 15 MG, DAILY X 21 DAYS WITH 7 DAYS OFF, ORAL ; 15 - 25 MG, DAILY, ORAL
     Route: 048
     Dates: start: 20070816
  3. DEXAMETHASONE [Concomitant]

REACTIONS (2)
  - EMOTIONAL DISORDER [None]
  - WHITE BLOOD CELL COUNT DECREASED [None]
